FAERS Safety Report 7949549-5 (Version None)
Quarter: 2011Q4

REPORT INFORMATION
  Report Type: 
  Country: None (occurrence: None)
  Receive Date: 20111130
  Receipt Date: 20111118
  Transmission Date: 20120403
  Serious: Yes (Other)
  Sender: FDA-Public Use
  Company Number: GB-ROCHE-1014876

PATIENT
  Age: 66 Year
  Sex: Male
  Weight: 80 kg

DRUGS (3)
  1. CHLORPHENIRAMINE MALEATE [Suspect]
     Indication: PREMEDICATION
     Route: 065
     Dates: start: 20111017, end: 20111017
  2. RITUXIMAB [Suspect]
     Indication: RHEUMATOID ARTHRITIS
     Route: 042
     Dates: start: 20111017, end: 20111017
  3. METHYLPREDNISOLONE SODIUM SUCCINATE [Suspect]
     Indication: PREMEDICATION
     Route: 065
     Dates: start: 20111017, end: 20111017

REACTIONS (5)
  - SPEECH DISORDER [None]
  - ABNORMAL BEHAVIOUR [None]
  - URTICARIA [None]
  - SWELLING FACE [None]
  - HYPOAESTHESIA [None]
